FAERS Safety Report 10418644 (Version 1)
Quarter: 2014Q2

REPORT INFORMATION
  Report Type: Spontaneous
  Country: US (occurrence: None)
  Receive Date: 20140613
  Receipt Date: 20140613
  Transmission Date: 20141212
  Serious: No
  Sender: FDA-Public Use
  Company Number: 1400488

PATIENT
  Age: 9 Year
  Sex: Male

DRUGS (1)
  1. VEMURAFENIB [Suspect]
     Indication: GLIOBLASTOMA MULTIFORME
     Dosage: (720 MG, 2 IN 1 D),
     Route: 048

REACTIONS (5)
  - Alopecia [None]
  - Off label use [None]
  - Madarosis [None]
  - Hair texture abnormal [None]
  - Rash follicular [None]
